FAERS Safety Report 9305422 (Version 1)
Quarter: 2013Q2

REPORT INFORMATION
  Report Type: Spontaneous
  Country: US (occurrence: US)
  Receive Date: 20130523
  Receipt Date: 20130523
  Transmission Date: 20140414
  Serious: Yes (Hospitalization)
  Sender: FDA-Public Use
  Company Number: US-BRISTOL-MYERS SQUIBB COMPANY-18895854

PATIENT
  Age: 78 Year
  Sex: Female
  Weight: 64.4 kg

DRUGS (2)
  1. ERBITUX [Suspect]
     Indication: COLON CANCER
     Dosage: SECOND DOSE:17MAY2013
     Dates: start: 20130510
  2. IRINOTECAN [Suspect]
     Dates: start: 20130510

REACTIONS (7)
  - Diarrhoea [Unknown]
  - Dehydration [Unknown]
  - Dizziness [Not Recovered/Not Resolved]
  - Nausea [Not Recovered/Not Resolved]
  - Vomiting [Unknown]
  - Abdominal pain [Unknown]
  - Blood pressure decreased [Unknown]
